FAERS Safety Report 5246356-1 (Version None)
Quarter: 2007Q1

REPORT INFORMATION
  Report Type: 
  Country: None (occurrence: None)
  Receive Date: 20061201
  Receipt Date: 20061016
  Transmission Date: 20070707
  Serious: No
  Sender: FDA-Public Use
  Company Number: 2006PV020489

PATIENT
  Age: 61 Year
  Sex: Female
  Weight: 99.7913 kg

DRUGS (4)
  1. BYETTA [Suspect]
     Indication: DIABETES MELLITUS NON-INSULIN-DEPENDENT
     Dosage: 5 MCG;BID;SC 10 MCG;BID;SC
     Route: 058
     Dates: start: 20060822, end: 20060924
  2. BYETTA [Suspect]
     Indication: DIABETES MELLITUS NON-INSULIN-DEPENDENT
     Dosage: 5 MCG;BID;SC 10 MCG;BID;SC
     Route: 058
     Dates: start: 20060925
  3. METFORMIN HCL [Concomitant]
  4. GLIPIZIDE [Concomitant]

REACTIONS (6)
  - ASTHENIA [None]
  - BLOOD GLUCOSE INCREASED [None]
  - HICCUPS [None]
  - NAUSEA [None]
  - STOMACH DISCOMFORT [None]
  - VOMITING [None]
